FAERS Safety Report 19950683 (Version 1)
Quarter: 2021Q4

REPORT INFORMATION
  Report Type: Spontaneous
  Country: US (occurrence: US)
  Receive Date: 20211014
  Receipt Date: 20211014
  Transmission Date: 20220303
  Serious: Yes (Other)
  Sender: FDA-Public Use
  Company Number: US-BEH-2021136623

PATIENT
  Sex: Male

DRUGS (2)
  1. PRIVIGEN [Suspect]
     Active Substance: HUMAN IMMUNOGLOBULIN G
     Indication: Follicular lymphoma
     Dosage: 30 GRAM EVERY 60 DAYS
     Route: 042
     Dates: start: 20210630
  2. PRIVIGEN [Suspect]
     Active Substance: HUMAN IMMUNOGLOBULIN G
     Dosage: UNK
     Route: 065
     Dates: start: 2019

REACTIONS (10)
  - Myocardial infarction [Unknown]
  - Urticaria [Unknown]
  - Headache [Unknown]
  - Nausea [Unknown]
  - Oxygen saturation decreased [Unknown]
  - No adverse event [Unknown]
  - Product temperature excursion issue [Unknown]
  - Product packaging issue [Unknown]
  - Product distribution issue [Unknown]
  - Product storage error [Unknown]
